FAERS Safety Report 10165898 (Version 2)
Quarter: 2014Q2

REPORT INFORMATION
  Report Type: Spontaneous
  Country: US (occurrence: US)
  Receive Date: 20140510
  Receipt Date: 20140510
  Transmission Date: 20141212
  Serious: No
  Sender: FDA-Public Use
  Company Number: US201210001105

PATIENT
  Age: 72 Year
  Sex: Female

DRUGS (2)
  1. BYDUREON [Suspect]
     Indication: INSULIN-REQUIRING TYPE 2 DIABETES MELLITUS
     Route: 058
     Dates: start: 201208
  2. HUMALOG [Concomitant]
     Indication: DIABETES MELLITUS

REACTIONS (4)
  - Abdominal discomfort [Unknown]
  - Underdose [Recovered/Resolved]
  - Off label use [Not Recovered/Not Resolved]
  - Blood glucose increased [Unknown]
